FAERS Safety Report 9321899 (Version 1)
Quarter: 2013Q2

REPORT INFORMATION
  Report Type: Spontaneous
  Country: US (occurrence: None)
  Receive Date: 20130530
  Receipt Date: 20130530
  Transmission Date: 20140414
  Serious: Yes (Hospitalization)
  Sender: FDA-Public Use
  Company Number: None

PATIENT
  Sex: 0

DRUGS (2)
  1. ULTRAVIST [Suspect]
     Route: 040
     Dates: start: 20130510, end: 20130529
  2. ULTRAVIST [Suspect]

REACTIONS (2)
  - Contrast media reaction [None]
  - Product quality issue [None]
